FAERS Safety Report 11814478 (Version 2)
Quarter: 2016Q1

REPORT INFORMATION
  Report Type: Spontaneous
  Country: US (occurrence: US)
  Receive Date: 20151209
  Receipt Date: 20160108
  Transmission Date: 20160525
  Serious: No
  Sender: FDA-Public Use
  Company Number: US-SHIRE-US201515140

PATIENT
  Age: 42 Year
  Sex: Female

DRUGS (1)
  1. NATPARA (PARATHYROID HORMONE) [Suspect]
     Active Substance: PARATHYROID HORMONE
     Indication: HYPERPARATHYROIDISM PRIMARY
     Dosage: 50 ?G, 1X/DAY:QD
     Route: 058
     Dates: start: 20150722

REACTIONS (6)
  - Abdominal mass [Unknown]
  - Pain in extremity [Unknown]
  - Product use issue [Unknown]
  - Breast mass [Unknown]
  - Gastrointestinal disorder [Unknown]
  - Off label use [Unknown]

NARRATIVE: CASE EVENT DATE: 2015
